FAERS Safety Report 6016031-4 (Version None)
Quarter: 2008Q4

REPORT INFORMATION
  Report Type: 
  Country: None (occurrence: None)
  Receive Date: 20081218
  Receipt Date: 20081210
  Transmission Date: 20090506
  Serious: Yes (Hospitalization)
  Sender: FDA-Public Use
  Company Number: DSA_32918_2008

PATIENT
  Age: 47 Year
  Sex: Male

DRUGS (2)
  1. TAVOR /00273201/ (TAVOR) (NOT SPECIFIED) [Suspect]
     Indication: DRUG USE FOR UNKNOWN INDICATION
     Dosage: (8 MG QD ORAL)
  2. TREVILOR (TREVILOR) (NOT SPECIFIED) [Suspect]
     Indication: DRUG USE FOR UNKNOWN INDICATION
     Dosage: (HIGHEST DOSE ORAL)
     Route: 048

REACTIONS (1)
  - DRUG INEFFECTIVE [None]
